FAERS Safety Report 4585750-9 (Version None)
Quarter: 2005Q1

REPORT INFORMATION
  Report Type: 
  Country: None (occurrence: None)
  Receive Date: 20050215
  Receipt Date: 20040806
  Transmission Date: 20050727
  Serious: Yes (Other)
  Sender: FDA-Public Use
  Company Number: 200510120BBE

PATIENT
  Sex: Male

DRUGS (14)
  1. KOATE [Suspect]
     Indication: FACTOR VIII DEFICIENCY
     Dates: start: 19840101
  2. KOATE [Suspect]
     Indication: FACTOR VIII DEFICIENCY
     Dates: start: 19900101
  3. AMOUR (FACTOR VIII) [Suspect]
     Dates: start: 19780101, end: 19800101
  4. AMOUR (FACTOR VIII) [Suspect]
     Dates: start: 19830101, end: 19840101
  5. IMMUNO KRYOBULIN (FACTOR VIII (ANTIHAEMOPHILIC FACTOR)) [Suspect]
     Dates: start: 19790101, end: 19800101
  6. BAXTER HEMOFIL (FACTOR VIII (ANTIHAEMOPHILIC FACTOR)) [Suspect]
     Dates: start: 19780101, end: 19860101
  7. BPL (FACTOR VIII) [Suspect]
     Dates: start: 19780101, end: 19800101
  8. BPL (FACTOR VIII) [Suspect]
     Dates: start: 19880101, end: 19900101
  9. BPL (FACTOR VIII) [Suspect]
     Dates: start: 19830101
  10. BPL (FACTOR VIII) [Suspect]
     Dates: start: 19860101
  11. ALPHA PROFILATE (FACTOR VIII(ANTIHAEMOPHILIC FACTOR)) [Suspect]
     Dates: start: 19850101, end: 19900101
  12. WHOLE BLOOD [Suspect]
     Dates: start: 19800101
  13. WHOLE BLOOD [Suspect]
     Dates: start: 19880101
  14. CRYOPRECIPITATED AHF [Suspect]
     Dates: start: 19780101, end: 19790101

REACTIONS (3)
  - HEPATITIS B [None]
  - HEPATITIS C [None]
  - HIV INFECTION [None]
